FAERS Safety Report 12070003 (Version 1)
Quarter: 2016Q1

REPORT INFORMATION
  Report Type: Report from Study
  Country: US (occurrence: US)
  Receive Date: 20160211
  Receipt Date: 20160211
  Transmission Date: 20160526
  Serious: Yes (Death, Hospitalization, Other)
  Sender: FDA-Public Use
  Company Number: US-ASTRAZENECA-2015SF04268

PATIENT
  Age: 25145 Day
  Sex: Female

DRUGS (1)
  1. BRILINTA [Suspect]
     Active Substance: TICAGRELOR
     Indication: ACUTE CORONARY SYNDROME
     Route: 048
     Dates: end: 20151016

REACTIONS (6)
  - Oxygen saturation decreased [Unknown]
  - Death [Fatal]
  - Cardiac disorder [Unknown]
  - Dyspnoea [Unknown]
  - Dizziness [Unknown]
  - Respiratory disorder [Unknown]

NARRATIVE: CASE EVENT DATE: 20151016
